FAERS Safety Report 4892216-5 (Version None)
Quarter: 2006Q1

REPORT INFORMATION
  Report Type: 
  Country: None (occurrence: None)
  Receive Date: 20060123
  Receipt Date: 20060110
  Transmission Date: 20060701
  Serious: Yes (Death, Other)
  Sender: FDA-Public Use
  Company Number: 2006003237

PATIENT
  Age: 58 Year
  Sex: Male
  Weight: 56 kg

DRUGS (7)
  1. NORVASC [Suspect]
     Indication: HYPERTENSION
     Dosage: 10 MG (5 MG, 2 IN 1 D), ORAL
     Route: 048
     Dates: start: 20050428, end: 20050706
  2. NORVASC [Suspect]
     Indication: HYPERTENSION
     Dosage: 10 MG (5 MG, 2 IN 1 D), ORAL
     Route: 048
     Dates: start: 20050710, end: 20051217
  3. CARDENALIN (DOXAZOSIN) [Suspect]
     Indication: HYPERTENSION
     Dosage: 5 MG (2 IN 1 D), ORAL
     Route: 048
     Dates: end: 20050706
  4. CARDENALIN (DOXAZOSIN) [Suspect]
     Indication: HYPERTENSION
     Dosage: 5 MG (2 IN 1 D), ORAL
     Route: 048
     Dates: start: 20050710, end: 20051217
  5. VALSARTAN [Suspect]
     Dosage: 160 MG (2 IN 1 D), ORAL
     Route: 048
     Dates: end: 20050706
  6. VALSARTAN [Suspect]
     Dosage: 160 MG (2 IN 1 D), ORAL
     Route: 048
     Dates: start: 20050710, end: 20051217
  7. LASIX [Concomitant]

REACTIONS (10)
  - ASCITES [None]
  - BLOOD PRESSURE DECREASED [None]
  - DISSEMINATED INTRAVASCULAR COAGULATION [None]
  - GENERALISED OEDEMA [None]
  - HYPOALBUMINAEMIA [None]
  - HYPOTENSION [None]
  - HYPOTHERMIA [None]
  - PROTEINURIA [None]
  - SEPTIC SHOCK [None]
  - THERAPEUTIC RESPONSE DECREASED [None]
